FAERS Safety Report 8241663-2 (Version None)
Quarter: 2012Q1

REPORT INFORMATION
  Report Type: 
  Country: None (occurrence: None)
  Receive Date: 20120328
  Receipt Date: 20120321
  Transmission Date: 20120608
  Serious: Yes (Life-Threatening, Other)
  Sender: FDA-Public Use
  Company Number: CHPA2012US005586

PATIENT
  Age: 59 Year
  Sex: Female

DRUGS (2)
  1. CENTRUM [Concomitant]
     Indication: SUPPLEMENTATION THERAPY
     Dosage: 1 DF, QD
     Route: 048
  2. 4 WAY MENTHOLATED NASAL SPRAY [Suspect]
     Indication: SINUS CONGESTION
     Dosage: 1 SPRAY PER NOSTRIL, 2-3 TIMES PER DAY
     Route: 045

REACTIONS (11)
  - CHRONIC OBSTRUCTIVE PULMONARY DISEASE [None]
  - BLOOD PRESSURE DECREASED [None]
  - ABDOMINAL HERNIA [None]
  - BACK DISORDER [None]
  - RESPIRATORY FAILURE [None]
  - MYOCARDIAL INFARCTION [None]
  - INCORRECT DRUG ADMINISTRATION DURATION [None]
  - CARDIAC FAILURE [None]
  - EMPHYSEMA [None]
  - ULCER HAEMORRHAGE [None]
  - NASAL DRYNESS [None]
